FAERS Safety Report 20494777 (Version 1)
Quarter: 2022Q1

REPORT INFORMATION
  Report Type: Other
  Country: GB (occurrence: GB)
  Receive Date: 20220221
  Receipt Date: 20220221
  Transmission Date: 20220423
  Serious: Yes (Other)
  Sender: FDA-Public Use
  Company Number: None

PATIENT
  Age: 43 Year
  Sex: Female

DRUGS (8)
  1. PREDNISOLONE [Suspect]
     Active Substance: PREDNISOLONE
     Indication: Rash
     Dosage: 20 MILLIGRAM, TABLET
     Route: 048
     Dates: start: 202009
  2. FEXOFENADINE [Concomitant]
     Active Substance: FEXOFENADINE HYDROCHLORIDE
     Indication: Product used for unknown indication
     Dosage: 180 MILLIGRAM
     Route: 065
  3. FEXOFENADINE [Concomitant]
     Active Substance: FEXOFENADINE HYDROCHLORIDE
     Indication: Skin burning sensation
  4. FEXOFENADINE [Concomitant]
     Active Substance: FEXOFENADINE HYDROCHLORIDE
     Indication: Feeling cold
  5. FEXOFENADINE [Concomitant]
     Active Substance: FEXOFENADINE HYDROCHLORIDE
     Indication: Pruritus
  6. FEXOFENADINE [Concomitant]
     Active Substance: FEXOFENADINE HYDROCHLORIDE
     Indication: Erythema
  7. FEXOFENADINE [Concomitant]
     Active Substance: FEXOFENADINE HYDROCHLORIDE
     Indication: Steroid withdrawal syndrome
  8. FEXOFENADINE [Concomitant]
     Active Substance: FEXOFENADINE HYDROCHLORIDE
     Indication: Chills

REACTIONS (17)
  - Steroid withdrawal syndrome [Unknown]
  - Skin burning sensation [Unknown]
  - Candida infection [Unknown]
  - Chest pain [Unknown]
  - Feeling cold [Unknown]
  - Discomfort [Unknown]
  - Food intolerance [Unknown]
  - Alopecia [Unknown]
  - Chills [Unknown]
  - Skin weeping [Unknown]
  - Skin exfoliation [Unknown]
  - Hyperacusis [Unknown]
  - Hyperhidrosis [Unknown]
  - Weight decreased [Unknown]
  - Insomnia [Unknown]
  - Pruritus [Unknown]
  - Erythema [Unknown]
